FAERS Safety Report 9251039 (Version 1)
Quarter: 2013Q1

REPORT INFORMATION
  Report Type: Spontaneous
  Country: US (occurrence: None)
  Receive Date: 20130305
  Receipt Date: 20130305
  Transmission Date: 20140127
  Serious: Yes (Hospitalization)
  Sender: FDA-Public Use
  Company Number: 163-21880-12071292

PATIENT
  Age: 62 Year
  Sex: Female

DRUGS (15)
  1. REVLIMID [Suspect]
     Indication: AMYLOIDOSIS
     Route: 048
     Dates: start: 201201
  2. DEXAMETHASONE [Concomitant]
  3. BUMETANIDE (BUMETANIDE) [Concomitant]
  4. VIAGRA (SILDENAFIL CITRATE) [Concomitant]
  5. SIMVASTATIN (SIMVASTATIN) [Concomitant]
  6. TOLAZAMIDE [Concomitant]
  7. LEVOTHYROXINE [Concomitant]
  8. ALBUTEROL (SALBUTAMOL) [Concomitant]
  9. BECLOMETHASONE (BECLOMETASONE DIPROPIONATE) [Concomitant]
  10. FAMOTIDINE [Concomitant]
  11. CETRIZINE (CETIRIZINE HYDROCHLORIDE) [Concomitant]
  12. OXYCODONE [Concomitant]
  13. TRAZODONE [Suspect]
  14. DOCUSATE SODIUM (DOCUSATE SODIUM) [Concomitant]
  15. AUGMENTIN (CLAVULIN) [Concomitant]

REACTIONS (3)
  - Pyrexia [None]
  - Pancytopenia [None]
  - Infection [None]
